FAERS Safety Report 24264620 (Version 1)
Quarter: 2024Q3

REPORT INFORMATION
  Report Type: Spontaneous
  Country: US (occurrence: None)
  Receive Date: 20240828
  Receipt Date: 20240828
  Transmission Date: 20241016
  Serious: No
  Sender: Public
  Company Number: None

PATIENT
  Sex: Male
  Weight: 75.6 kg

DRUGS (2)
  1. TRIAMCINOLONE [Suspect]
     Active Substance: TRIAMCINOLONE
     Indication: Dermatitis atopic
     Dosage: FREQUENCY : TWICE A DAY;?
     Route: 061
     Dates: start: 20220211
  2. MOMETASONE [Suspect]
     Active Substance: MOMETASONE
     Dosage: FREQUENCY : DAILY;?
     Route: 061
     Dates: start: 20211207

REACTIONS (3)
  - Drug hypersensitivity [None]
  - Drug intolerance [None]
  - Drug ineffective [None]
